FAERS Safety Report 4401675-3 (Version None)
Quarter: 2004Q3

REPORT INFORMATION
  Report Type: 
  Country: None (occurrence: None)
  Receive Date: 20040719
  Receipt Date: 20030603
  Transmission Date: 20050211
  Serious: Yes (Other)
  Sender: FDA-Public Use
  Company Number: PZ20030073

PATIENT
  Age: 50 Year
  Sex: Male

DRUGS (7)
  1. LAMIVUDINE [Suspect]
     Indication: HIV INFECTION
     Dosage: 300MG PER DAY
     Route: 048
     Dates: start: 20010927, end: 20020425
  2. LAMIVUDINE [Suspect]
     Dosage: 300MG PER DAY
     Route: 048
     Dates: start: 20020527
  3. ZIDOVUDINE [Suspect]
     Indication: HIV INFECTION
     Dosage: 400MG PER DAY
     Route: 048
     Dates: start: 20020425, end: 20030320
  4. STAVUDINE [Suspect]
     Indication: HIV INFECTION
     Dosage: 75MG PER DAY
     Route: 048
     Dates: start: 20010927, end: 20020425
  5. EFAVIRENZ [Suspect]
     Indication: HIV INFECTION
     Dosage: 600MG PER DAY
     Route: 048
     Dates: start: 20010927, end: 20020718
  6. DIDANOSINE [Suspect]
     Indication: HIV INFECTION
     Dosage: 400MG PER DAY
     Route: 048
     Dates: start: 20020425
  7. FLUCONAZOLE [Concomitant]
     Indication: CANDIDIASIS
     Dates: start: 20020401

REACTIONS (3)
  - HEPATITIS B [None]
  - NAUSEA [None]
  - PANCREATITIS [None]
